FAERS Safety Report 6962999-9 (Version None)
Quarter: 2010Q3

REPORT INFORMATION
  Report Type: 
  Country: None (occurrence: None)
  Receive Date: 20100831
  Receipt Date: 20100816
  Transmission Date: 20110219
  Serious: Yes (Other)
  Sender: FDA-Public Use
  Company Number: ACO_01814_2010

PATIENT
  Age: 60 Year
  Sex: Female

DRUGS (3)
  1. AMPYRA [Suspect]
     Indication: GAIT DISTURBANCE
     Dosage: (10 MG BID), (10 MG QD)
     Dates: start: 20100701, end: 20100101
  2. AMPYRA [Suspect]
     Indication: GAIT DISTURBANCE
     Dosage: (10 MG BID), (10 MG QD)
     Dates: start: 20100101
  3. TYSABRI [Concomitant]

REACTIONS (2)
  - INSOMNIA [None]
  - PHARYNGEAL OEDEMA [None]
